FAERS Safety Report 4418309-4 (Version None)
Quarter: 2004Q3

REPORT INFORMATION
  Report Type: 
  Country: None (occurrence: None)
  Receive Date: 20040809
  Receipt Date: 20040205
  Transmission Date: 20050211
  Serious: No
  Sender: FDA-Public Use
  Company Number: US-GLAXOSMITHKLINE-A0496754A

PATIENT
  Age: 46 Year
  Sex: Female

DRUGS (6)
  1. PAXIL CR [Suspect]
     Indication: POST-TRAUMATIC STRESS DISORDER
     Dosage: 12.5MG PER DAY
     Route: 048
     Dates: start: 20021201
  2. BLOOD PRESSURE MEDICATION [Concomitant]
  3. NECON [Concomitant]
  4. SINGULAIR [Concomitant]
  5. WEIGHT LOSS SUPPLEMENT [Concomitant]
  6. ALBUTEROL [Concomitant]

REACTIONS (1)
  - WEIGHT INCREASED [None]
